FAERS Safety Report 4448099-0 (Version None)
Quarter: 2004Q3

REPORT INFORMATION
  Report Type: 
  Country: None (occurrence: None)
  Receive Date: 20040913
  Receipt Date: 20040903
  Transmission Date: 20050211
  Serious: Yes (Death)
  Sender: FDA-Public Use
  Company Number: JP-BRISTOL-MYERS SQUIBB COMPANY-12692026

PATIENT
  Age: 62 Year
  Sex: Male

DRUGS (2)
  1. TAXOL [Suspect]
     Indication: GASTRIC CANCER
     Route: 042
     Dates: start: 20040810, end: 20040824
  2. RANDA [Suspect]
     Indication: GASTRIC CANCER
     Route: 042
     Dates: start: 20040810, end: 20040824

REACTIONS (3)
  - BONE MARROW DEPRESSION [None]
  - CARDIO-RESPIRATORY ARREST [None]
  - GASTRIC CANCER STAGE IV WITH METASTASES [None]
